FAERS Safety Report 7675956-4 (Version None)
Quarter: 2011Q3

REPORT INFORMATION
  Report Type: 
  Country: None (occurrence: None)
  Receive Date: 20110811
  Receipt Date: 20110802
  Transmission Date: 20111222
  Serious: No
  Sender: FDA-Public Use
  Company Number: US-BIOGENIDEC-2011BI000731

PATIENT
  Sex: Male

DRUGS (2)
  1. TYSABRI [Suspect]
     Indication: MULTIPLE SCLEROSIS
     Route: 042
     Dates: start: 20071108, end: 20101126
  2. TYSABRI [Suspect]
     Route: 042
     Dates: start: 20110510

REACTIONS (13)
  - VISUAL ACUITY REDUCED [None]
  - FATIGUE [None]
  - MUSCULAR WEAKNESS [None]
  - AMNESIA [None]
  - ASTHENIA [None]
  - VISUAL IMPAIRMENT [None]
  - NERVOUS SYSTEM DISORDER [None]
  - COGNITIVE DISORDER [None]
  - MUSCULOSKELETAL DISORDER [None]
  - BALANCE DISORDER [None]
  - MEMORY IMPAIRMENT [None]
  - DYSARTHRIA [None]
  - FALL [None]
